FAERS Safety Report 12783237 (Version 1)
Quarter: 2016Q3

REPORT INFORMATION
  Report Type: Spontaneous
  Country: US (occurrence: US)
  Receive Date: 20160927
  Receipt Date: 20160927
  Transmission Date: 20161109
  Serious: Yes (Other)
  Sender: FDA-Public Use
  Company Number: US-BEH-2011028719

PATIENT
  Age: 53 Year
  Sex: Female
  Weight: 61.24 kg

DRUGS (13)
  1. PROPANOLOL [Concomitant]
     Active Substance: PROPRANOLOL HYDROCHLORIDE
  2. HIZENTRA [Suspect]
     Active Substance: HUMAN IMMUNOGLOBULIN G
     Indication: IMMUNODEFICIENCY COMMON VARIABLE
     Dosage: 4 GM 20 ML VIAL;80 ML WEEKLY VIA 4 SITES IN APPROX. 1-2 HOURS
     Route: 058
  3. HIZENTRA [Suspect]
     Active Substance: HUMAN IMMUNOGLOBULIN G
     Dosage: 4 GM 20 ML VIAL; 60 ML VIA 4 SITES IN APPROX. 1-2 HOURS
     Route: 058
  4. BUPROPION. [Concomitant]
     Active Substance: BUPROPION
  5. NEURONTIN [Concomitant]
     Active Substance: GABAPENTIN
  6. TRAMADOL. [Concomitant]
     Active Substance: TRAMADOL
  7. BENAZEPRIL [Concomitant]
     Active Substance: BENAZEPRIL HYDROCHLORIDE
  8. DICYCLOMINE [Concomitant]
     Active Substance: DICYCLOMINE HYDROCHLORIDE
  9. ADVAIR HFA [Concomitant]
     Active Substance: FLUTICASONE PROPIONATE\SALMETEROL XINAFOATE
  10. SPIRIVA [Concomitant]
     Active Substance: TIOTROPIUM BROMIDE MONOHYDRATE
  11. DILTIAZEM. [Concomitant]
     Active Substance: DILTIAZEM
  12. TESSALON [Concomitant]
     Active Substance: BENZONATATE
  13. ALLEGRA [Concomitant]
     Active Substance: FEXOFENADINE HYDROCHLORIDE

REACTIONS (23)
  - Fall [Not Recovered/Not Resolved]
  - Infusion site swelling [Unknown]
  - Pruritus [Unknown]
  - Contusion [Not Recovered/Not Resolved]
  - Heart rate decreased [Unknown]
  - Arrhythmia [Unknown]
  - Chills [Unknown]
  - Nausea [Unknown]
  - Dyspnoea [Unknown]
  - Pyrexia [Unknown]
  - Urticaria [Unknown]
  - Chills [Unknown]
  - Rash [Unknown]
  - Skin disorder [Unknown]
  - Rash [Unknown]
  - Chest discomfort [Unknown]
  - Viral infection [Unknown]
  - Erythema [Unknown]
  - Nausea [Unknown]
  - Asthma [Unknown]
  - Chest pain [Unknown]
  - Headache [Unknown]
  - Headache [Unknown]

NARRATIVE: CASE EVENT DATE: 20101117
